FAERS Safety Report 8365643-1 (Version None)
Quarter: 2012Q2

REPORT INFORMATION
  Report Type: 
  Country: None (occurrence: None)
  Receive Date: 20120516
  Receipt Date: 20120508
  Transmission Date: 20120825
  Serious: Yes (Hospitalization, Other)
  Sender: FDA-Public Use
  Company Number: US-BIOGENIDEC-2012BI011037

PATIENT
  Age: 59 Year
  Sex: Female

DRUGS (5)
  1. TYSABRI [Suspect]
     Route: 042
     Dates: start: 20110819
  2. METOPROLOL TARTRATE [Concomitant]
     Indication: HYPERTENSION
  3. TYSABRI [Suspect]
     Route: 042
     Dates: start: 20100730, end: 20100924
  4. TYSABRI [Suspect]
     Indication: MULTIPLE SCLEROSIS
     Route: 042
     Dates: start: 20090604, end: 20091022
  5. LEVOTHYROXINE SODIUM [Concomitant]
     Indication: HYPOTHYROIDISM
     Dates: start: 20110101

REACTIONS (4)
  - ANAEMIA [None]
  - DEEP VEIN THROMBOSIS [None]
  - URINARY TRACT INFECTION [None]
  - HYPERTENSION [None]
